FAERS Safety Report 15188161 (Version 1)
Quarter: 2018Q3

REPORT INFORMATION
  Report Type: Spontaneous
  Country: CN (occurrence: CN)
  Receive Date: 20180724
  Receipt Date: 20180724
  Transmission Date: 20181010
  Serious: Yes (Hospitalization, Other)
  Sender: FDA-Public Use
  Company Number: CN-PAN-2018-000369

PATIENT
  Age: 45 Year
  Sex: Male

DRUGS (3)
  1. TACROLIMUS. [Suspect]
     Active Substance: TACROLIMUS
     Indication: GLOMERULONEPHRITIS MEMBRANOUS
     Dosage: 0.05MG/KG/D
  2. PREDNISONE. [Concomitant]
     Active Substance: PREDNISONE
  3. VALSARTAN. [Concomitant]
     Active Substance: VALSARTAN

REACTIONS (2)
  - Product use in unapproved indication [Unknown]
  - Drug ineffective for unapproved indication [Unknown]
